FAERS Safety Report 4796844-7 (Version None)
Quarter: 2005Q4

REPORT INFORMATION
  Report Type: 
  Country: None (occurrence: None)
  Receive Date: 20051013
  Receipt Date: 20051004
  Transmission Date: 20060501
  Serious: Yes (Other)
  Sender: FDA-Public Use
  Company Number: PHBS2005BR14749

PATIENT
  Age: 43 Year
  Sex: Female
  Weight: 55 kg

DRUGS (11)
  1. MELLARIL [Suspect]
     Indication: DEPRESSION
     Route: 048
     Dates: end: 20030101
  2. MELLARIL [Suspect]
     Dosage: 50 MG/D
     Route: 048
     Dates: start: 20000101
  3. MELLARIL [Suspect]
     Dosage: 300 MG/D
     Route: 048
  4. CLONAZEPAM [Concomitant]
     Route: 065
  5. CLOMIPRAMINE HCL [Concomitant]
     Route: 065
  6. CARBOLITIUM [Concomitant]
     Route: 065
  7. ANAFRANIL [Concomitant]
     Route: 065
  8. FRONTAL [Concomitant]
     Route: 065
  9. HALDOL [Concomitant]
     Route: 065
  10. IMIPRAMINE [Concomitant]
     Route: 065
  11. LUFTAL [Concomitant]
     Route: 065

REACTIONS (12)
  - CONFUSIONAL STATE [None]
  - DIFFICULTY IN WALKING [None]
  - DIZZINESS [None]
  - GAIT DISTURBANCE [None]
  - HALLUCINATION [None]
  - HEADACHE [None]
  - HEPATIC FUNCTION ABNORMAL [None]
  - PAIN [None]
  - PHYSIOTHERAPY [None]
  - PSYCHOTIC DISORDER [None]
  - TARDIVE DYSKINESIA [None]
  - TREMOR [None]
